FAERS Safety Report 7936116-2 (Version None)
Quarter: 2011Q4

REPORT INFORMATION
  Report Type: 
  Country: None (occurrence: None)
  Receive Date: 20111123
  Receipt Date: 20111114
  Transmission Date: 20120403
  Serious: Yes (Other)
  Sender: FDA-Public Use
  Company Number: US-JNJFOC-20110912150

PATIENT
  Sex: Female
  Weight: 45.81 kg

DRUGS (5)
  1. INVEGA SUSTENNA [Suspect]
     Route: 030
  2. DIAZEPAM [Concomitant]
     Indication: AKATHISIA
     Route: 065
  3. INVEGA SUSTENNA [Suspect]
     Indication: BIPOLAR DISORDER
     Route: 030
  4. INVEGA SUSTENNA [Suspect]
     Route: 030
     Dates: start: 20110701
  5. DIAZEPAM [Concomitant]
     Indication: ANXIETY
     Route: 065

REACTIONS (4)
  - AKATHISIA [None]
  - INCORRECT ROUTE OF DRUG ADMINISTRATION [None]
  - BLOOD PROLACTIN INCREASED [None]
  - GALACTORRHOEA [None]
